FAERS Safety Report 12540244 (Version 3)
Quarter: 2019Q4

REPORT INFORMATION
  Report Type: Spontaneous
  Country: US (occurrence: US)
  Receive Date: 20160708
  Receipt Date: 20191031
  Transmission Date: 20200122
  Serious: Yes (Other)
  Sender: FDA-Public Use
  Company Number: US-PFIZER INC-2016333914

PATIENT
  Age: 70 Year
  Sex: Female
  Weight: 65 kg

DRUGS (53)
  1. LIPITOR [Suspect]
     Active Substance: ATORVASTATIN CALCIUM
     Indication: BLOOD CHOLESTEROL INCREASED
  2. LIPITOR [Suspect]
     Active Substance: ATORVASTATIN CALCIUM
     Indication: HYPERLIPIDAEMIA
  3. LOSARTAN. [Concomitant]
     Active Substance: LOSARTAN
     Indication: FIXED ERUPTION
     Dosage: UNK
  4. AMLODIPINE [Concomitant]
     Active Substance: AMLODIPINE BESYLATE
     Indication: HYPERTENSION
     Dosage: UNK
  5. DECADRON [Concomitant]
     Active Substance: DEXAMETHASONE
     Indication: RHINITIS ALLERGIC
     Dosage: UNK
     Dates: start: 201004
  6. BIDEX [GUAIFENESIN] [Concomitant]
     Indication: UPPER RESPIRATORY TRACT INFECTION
     Dosage: UNK
     Dates: start: 200611
  7. CIPRO [Concomitant]
     Active Substance: CIPROFLOXACIN HYDROCHLORIDE
     Indication: UPPER RESPIRATORY TRACT INFECTION
     Dosage: UNK
     Dates: start: 200612
  8. NAPROSYN [Concomitant]
     Active Substance: NAPROXEN
     Indication: OSTEOARTHRITIS
     Dosage: UNK
     Dates: start: 200603
  9. DARVOCET [Concomitant]
     Active Substance: ACETAMINOPHEN\PROPOXYPHENE HYDROCHLORIDE
     Indication: MUSCULOSKELETAL PAIN
     Dosage: UNK
  10. CELESTONE SOLUSPAN [Concomitant]
     Active Substance: BETAMETHASONE ACETATE\BETAMETHASONE SODIUM PHOSPHATE
     Indication: MUSCULOSKELETAL PAIN
     Dosage: UNK
     Dates: start: 201111
  11. ALBUTEROL HFA [Concomitant]
     Active Substance: ALBUTEROL SULFATE
     Indication: UPPER RESPIRATORY TRACT INFECTION
     Dosage: UNK
     Dates: start: 201111
  12. LIPITOR [Suspect]
     Active Substance: ATORVASTATIN CALCIUM
     Indication: HYPERCHOLESTEROLAEMIA
     Dosage: 10 MG, 1X/DAY
     Route: 048
     Dates: start: 200402, end: 2013
  13. TRIAMTERENE. [Concomitant]
     Active Substance: TRIAMTERENE
     Indication: HYPERTENSION
     Dosage: UNK
  14. CATAPRES [Concomitant]
     Active Substance: CLONIDINE HYDROCHLORIDE
     Dosage: UNK
  15. DYAZIDE [Concomitant]
     Active Substance: HYDROCHLOROTHIAZIDE\TRIAMTERENE
     Indication: HYPERTENSION
     Dosage: UNK
  16. ANTIVERT [Concomitant]
     Active Substance: MECLIZINE HYDROCHLORIDE
     Indication: DIZZINESS
     Dosage: UNK
     Dates: start: 200412
  17. DIPROLENE [Concomitant]
     Active Substance: BETAMETHASONE DIPROPIONATE
     Indication: ECZEMA NUMMULAR
     Dosage: UNK
     Dates: start: 200504
  18. CLOBETASOL [Concomitant]
     Active Substance: CLOBETASOL
     Indication: ECZEMA NUMMULAR
     Dosage: UNK
     Dates: start: 200504
  19. GUAIFENESIN. [Concomitant]
     Active Substance: GUAIFENESIN
     Indication: UPPER RESPIRATORY TRACT INFECTION
     Dosage: UNK
     Dates: start: 200511
  20. DEXAMETHASONE. [Concomitant]
     Active Substance: DEXAMETHASONE
     Dosage: UNK
     Dates: start: 200612
  21. PHENERGAN W/ CODEINE [Concomitant]
     Active Substance: CODEINE PHOSPHATE\PROMETHAZINE HYDROCHLORIDE
     Indication: UPPER RESPIRATORY TRACT INFECTION
     Dosage: UNK
     Dates: start: 200612
  22. PHENERGAN W/ CODEINE [Concomitant]
     Active Substance: CODEINE PHOSPHATE\PROMETHAZINE HYDROCHLORIDE
     Indication: ASTHMA
     Dosage: UNK
     Dates: start: 201111
  23. MOTRIN [Concomitant]
     Active Substance: IBUPROFEN
     Dosage: UNK
  24. ALBUTEROL HFA [Concomitant]
     Active Substance: ALBUTEROL SULFATE
     Indication: ASTHMA
  25. SINGULAIR [Concomitant]
     Active Substance: MONTELUKAST SODIUM
     Indication: BRONCHITIS CHRONIC
     Dosage: UNK
     Dates: start: 201208
  26. PROCARDIA [Concomitant]
     Active Substance: NIFEDIPINE
     Indication: HYPERTENSION
     Dosage: UNK
  27. BETAMETHASONE. [Concomitant]
     Active Substance: BETAMETHASONE
     Indication: ECZEMA NUMMULAR
     Dosage: UNK
     Dates: start: 200504
  28. COMPAZINE [Concomitant]
     Active Substance: PROCHLORPERAZINE MALEATE
     Indication: GASTROENTERITIS VIRAL
     Dosage: UNK
     Dates: start: 200809
  29. ZYRTEC [Concomitant]
     Active Substance: CETIRIZINE HYDROCHLORIDE
     Indication: FIXED ERUPTION
     Dosage: UNK
     Dates: start: 201210
  30. LOSARTAN/HCTZ [Concomitant]
     Active Substance: HYDROCHLOROTHIAZIDE\LOSARTAN
     Indication: HYPERTENSION
     Dosage: UNK
  31. AMOXICILLIN. [Concomitant]
     Active Substance: AMOXICILLIN
     Indication: UPPER RESPIRATORY TRACT INFECTION
     Dosage: UNK
     Dates: start: 200511
  32. BIDEX [GUAIFENESIN] [Concomitant]
     Dosage: UNK
     Dates: start: 200612
  33. COLACE [Concomitant]
     Active Substance: DOCUSATE SODIUM
     Indication: BLOOD LOSS ANAEMIA
     Dosage: UNK
     Dates: start: 200604
  34. HYDROXYZINE [Concomitant]
     Active Substance: HYDROXYZINE HYDROCHLORIDE
     Indication: PRURITUS
  35. NORVASC [Concomitant]
     Active Substance: AMLODIPINE BESYLATE
     Indication: FIXED ERUPTION
     Dosage: UNK
     Dates: start: 201210
  36. TIAZAC [DILTIAZEM HYDROCHLORIDE] [Concomitant]
     Indication: HYPERTENSION
     Dosage: UNK
  37. LOSARTAN. [Concomitant]
     Active Substance: LOSARTAN
     Indication: HYPERTENSION
     Dosage: UNK
     Dates: start: 201210
  38. DECADRON [Concomitant]
     Active Substance: DEXAMETHASONE
     Indication: UPPER RESPIRATORY TRACT INFECTION
     Dosage: UNK
     Dates: start: 200511
  39. AMOXICILLIN. [Concomitant]
     Active Substance: AMOXICILLIN
     Dosage: UNK
     Dates: start: 200611
  40. FLONASE [Concomitant]
     Active Substance: FLUTICASONE PROPIONATE
     Indication: RHINITIS ALLERGIC
     Dosage: UNK
     Dates: start: 201102
  41. BETAMETHASONE. [Concomitant]
     Active Substance: BETAMETHASONE
     Indication: RHINITIS ALLERGIC
     Dosage: UNK
     Dates: start: 201102
  42. TRIAMCINOLONE [Concomitant]
     Active Substance: TRIAMCINOLONE
     Indication: ECZEMA NUMMULAR
     Dosage: UNK
     Dates: start: 200504
  43. HYDROXYZINE [Concomitant]
     Active Substance: HYDROXYZINE HYDROCHLORIDE
     Indication: NEOPLASM SKIN
     Dosage: UNK
     Dates: start: 201206
  44. BETAMETHASONE VALERATE. [Concomitant]
     Active Substance: BETAMETHASONE VALERATE
     Indication: DERMATITIS
     Dosage: UNK
     Dates: start: 201209
  45. CATAPRES [Concomitant]
     Active Substance: CLONIDINE HYDROCHLORIDE
     Indication: HYPERTENSION
     Dosage: UNK
     Dates: start: 200710
  46. CYPROHEPTADINE. [Concomitant]
     Active Substance: CYPROHEPTADINE
     Indication: ECZEMA NUMMULAR
     Dosage: UNK
     Dates: start: 200504
  47. CELESTONE SOLUSPAN [Concomitant]
     Active Substance: BETAMETHASONE ACETATE\BETAMETHASONE SODIUM PHOSPHATE
     Indication: DERMATITIS
     Dosage: UNK
     Dates: start: 201209
  48. HYZAAR [Concomitant]
     Active Substance: HYDROCHLOROTHIAZIDE\LOSARTAN POTASSIUM
     Indication: HYPERTENSION
     Dosage: UNK
  49. ATENOLOL. [Concomitant]
     Active Substance: ATENOLOL
     Indication: HYPERTENSION
     Dosage: UNK
  50. DEXAMETHASONE. [Concomitant]
     Active Substance: DEXAMETHASONE
     Indication: UPPER RESPIRATORY TRACT INFECTION
     Dosage: UNK
     Dates: start: 200611
  51. FLONASE [Concomitant]
     Active Substance: FLUTICASONE PROPIONATE
     Indication: BRONCHITIS CHRONIC
     Dosage: UNK
     Dates: start: 201208
  52. FERROUS SULFATE. [Concomitant]
     Active Substance: FERROUS SULFATE
     Indication: BLOOD LOSS ANAEMIA
     Dosage: UNK
     Dates: start: 200604
  53. CELESTONE SOLUSPAN [Concomitant]
     Active Substance: BETAMETHASONE ACETATE\BETAMETHASONE SODIUM PHOSPHATE
     Indication: FIXED ERUPTION
     Dosage: UNK
     Dates: start: 201210

REACTIONS (6)
  - Neuropathy peripheral [Not Recovered/Not Resolved]
  - Aortic valve incompetence [Not Recovered/Not Resolved]
  - Dermatitis [Unknown]
  - Aortic arteriosclerosis [Not Recovered/Not Resolved]
  - Type 2 diabetes mellitus [Not Recovered/Not Resolved]
  - Myalgia [Unknown]

NARRATIVE: CASE EVENT DATE: 201002
